FAERS Safety Report 22748330 (Version 3)
Quarter: 2023Q4

REPORT INFORMATION
  Report Type: Spontaneous
  Country: US (occurrence: US)
  Receive Date: 20230725
  Receipt Date: 20231004
  Transmission Date: 20240110
  Serious: No
  Sender: FDA-Public Use
  Company Number: US-PFIZER INC-202300255896

PATIENT
  Age: 15 Year
  Sex: Male
  Weight: 45.36 kg

DRUGS (2)
  1. GENOTROPIN [Suspect]
     Active Substance: SOMATROPIN
     Indication: Short stature
     Dosage: 1.2 MG, CYCLIC (1.2MG ALTERNATING WITH 1.4MG EVERY OTHER DAY BY INJECTION )
  2. GENOTROPIN [Suspect]
     Active Substance: SOMATROPIN
     Dosage: 1.4 MG, CYCLIC(1.2MG ALTERNATING WITH 1.4MG EVERY OTHER DAY BY INJECTION )

REACTIONS (3)
  - Drug dose omission by device [Unknown]
  - Product storage error [Unknown]
  - Device information output issue [Unknown]

NARRATIVE: CASE EVENT DATE: 20230719
